FAERS Safety Report 8576590-4 (Version None)
Quarter: 2012Q3

REPORT INFORMATION
  Report Type: 
  Country: None (occurrence: None)
  Receive Date: 20120807
  Receipt Date: 20120726
  Transmission Date: 20120928
  Serious: No
  Sender: FDA-Public Use
  Company Number: CA-JNJFOC-20120713720

PATIENT
  Age: 92 Year
  Sex: Female

DRUGS (2)
  1. DURAGESIC-100 [Suspect]
     Indication: PRODUCT USED FOR UNKNOWN INDICATION
     Route: 062
     Dates: start: 20120723, end: 20120726
  2. DURAGESIC-100 [Suspect]
     Route: 062
     Dates: start: 20120720

REACTIONS (1)
  - WRONG TECHNIQUE IN DRUG USAGE PROCESS [None]
